FAERS Safety Report 14233458 (Version 1)
Quarter: 2017Q4

REPORT INFORMATION
  Report Type: Spontaneous
  Country: GB (occurrence: GB)
  Receive Date: 20171128
  Receipt Date: 20171128
  Transmission Date: 20180321
  Serious: Yes (Death)
  Sender: FDA-Public Use
  Company Number: GB-TEVA-2017-GB-826055

PATIENT
  Sex: Male

DRUGS (5)
  1. MORPHINE [Interacting]
     Active Substance: MORPHINE
     Route: 065
  2. PREGABALIN. [Interacting]
     Active Substance: PREGABALIN
     Route: 048
  3. DIAZEPAM. [Suspect]
     Active Substance: DIAZEPAM
     Route: 048
  4. BUPRENORPHINE. [Concomitant]
     Active Substance: BUPRENORPHINE
     Route: 048
  5. ZOPICLONE [Interacting]
     Active Substance: ZOPICLONE
     Route: 048

REACTIONS (2)
  - Toxicity to various agents [Fatal]
  - Drug interaction [Fatal]
